FAERS Safety Report 7012153-X (Version None)
Quarter: 2010Q3

REPORT INFORMATION
  Report Type: 
  Country: None (occurrence: None)
  Receive Date: 20100924
  Receipt Date: 20100913
  Transmission Date: 20110219
  Serious: Yes (Hospitalization, Other)
  Sender: FDA-Public Use
  Company Number: JP-JNJFOC-20081005717

PATIENT
  Age: 63 Year
  Sex: Female
  Weight: 41 kg

DRUGS (22)
  1. REMICADE [Suspect]
     Indication: BEHCET'S SYNDROME
     Route: 042
  2. REMICADE [Suspect]
     Route: 042
  3. PREDNISOLONE [Suspect]
     Indication: MYELODYSPLASTIC SYNDROME
     Route: 048
  4. PREDNISOLONE [Suspect]
     Route: 048
  5. PREDNISOLONE [Suspect]
     Route: 048
  6. PREDNISOLONE [Suspect]
     Route: 048
  7. PREDNISOLONE [Suspect]
     Route: 048
  8. PREDNISOLONE [Suspect]
     Route: 048
  9. PREDNISOLONE [Suspect]
     Indication: BEHCET'S SYNDROME
     Route: 048
  10. PREDNISOLONE [Suspect]
     Route: 048
  11. PREDNISOLONE [Suspect]
     Route: 048
  12. PREDNISOLONE [Suspect]
     Route: 048
  13. PREDNISOLONE [Suspect]
     Route: 048
  14. PREDNISOLONE [Suspect]
     Route: 048
  15. PREDNISOLONE SODIUM SUCCINATE INJ [Suspect]
     Indication: BEHCET'S SYNDROME
  16. PREDNISOLONE SODIUM SUCCINATE INJ [Suspect]
  17. PREDNISOLONE SODIUM SUCCINATE INJ [Suspect]
  18. SOLU-MEDROL [Suspect]
     Indication: BEHCET'S SYNDROME
  19. SOLU-MEDROL [Suspect]
  20. COLCHICINE [Concomitant]
     Indication: BEHCET'S SYNDROME
     Route: 048
  21. COLCHICINE [Concomitant]
     Route: 048
  22. SALAZOPYRIN [Concomitant]
     Indication: BEHCET'S SYNDROME
     Route: 048

REACTIONS (3)
  - CYTOMEGALOVIRUS INFECTION [None]
  - GASTROINTESTINAL ULCER HAEMORRHAGE [None]
  - ILEAL ULCER [None]
